FAERS Safety Report 5340959-1 (Version None)
Quarter: 2007Q2

REPORT INFORMATION
  Report Type: 
  Country: None (occurrence: None)
  Receive Date: 20070405
  Receipt Date: 20070119
  Transmission Date: 20071010
  Serious: No
  Sender: FDA-Public Use
  Company Number: US200701004473

PATIENT
  Age: 40 Year
  Sex: Female

DRUGS (1)
  1. CYMBALTA [Suspect]
     Dosage: 60 MG,

REACTIONS (1)
  - BLOOD PRESSURE INCREASED [None]
